FAERS Safety Report 9681236 (Version 1)
Quarter: 2013Q4

REPORT INFORMATION
  Report Type: Report from Study
  Country: BR (occurrence: BR)
  Receive Date: 20131111
  Receipt Date: 20131111
  Transmission Date: 20140711
  Serious: Yes (Other)
  Sender: FDA-Public Use
  Company Number: PHHY2013BR128089

PATIENT
  Age: 76 Year
  Sex: Female
  Weight: 63 kg

DRUGS (6)
  1. DIOVAN HCT [Suspect]
     Indication: HYPERTENSION
     Dosage: 1 DF, (160/ 12,5 MG) DAILY
     Route: 048
  2. DIOVAN HCT [Suspect]
     Dosage: 1 DF, (160/ 12,5 MG) DAILY
     Route: 048
     Dates: start: 20131107
  3. GALVUS MET [Suspect]
     Indication: DIABETES MELLITUS
     Dosage: 2 DF, (850/50 MG) DAILY
     Route: 048
  4. NOVOLIN [Suspect]
     Indication: DIABETES MELLITUS
     Dosage: 18 IU, UNK
     Route: 030
  5. SYNTHROID [Suspect]
     Dosage: 1 DF, (88 MCG) DAILY
     Route: 048
  6. VYTORIN [Suspect]
     Dosage: 1 DF, (10/20 MG) DAILY
     Route: 048

REACTIONS (3)
  - Diabetic eye disease [Not Recovered/Not Resolved]
  - Hypertension [Unknown]
  - Anxiety [Recovered/Resolved]
